FAERS Safety Report 20572385 (Version 2)
Quarter: 2022Q1

REPORT INFORMATION
  Report Type: Report from Study
  Country: US (occurrence: None)
  Receive Date: 20220309
  Receipt Date: 20220310
  Transmission Date: 20220423
  Serious: Yes (Other)
  Sender: FDA-Public Use
  Company Number: US-Hikma Pharmaceuticals USA Inc.-US-H14001-22-00589

PATIENT
  Sex: Female

DRUGS (1)
  1. KLOXXADO [Suspect]
     Active Substance: NALOXONE HYDROCHLORIDE
     Indication: Overdose
     Dosage: UNKNOWN
     Route: 045

REACTIONS (8)
  - Drug withdrawal syndrome [Unknown]
  - Aggression [Unknown]
  - Headache [Unknown]
  - Heart rate increased [Unknown]
  - Hyperhidrosis [Unknown]
  - Vomiting [Unknown]
  - Nausea [Unknown]
  - Tremor [Unknown]
